FAERS Safety Report 7582832-4 (Version None)
Quarter: 2011Q2

REPORT INFORMATION
  Report Type: 
  Country: None (occurrence: None)
  Receive Date: 20110630
  Receipt Date: 20110621
  Transmission Date: 20111010
  Serious: Yes (Hospitalization)
  Sender: FDA-Public Use
  Company Number: US-NOVOPROD-330397

PATIENT
  Sex: Male

DRUGS (5)
  1. GLYBURIDE [Concomitant]
     Indication: TYPE 2 DIABETES MELLITUS
     Route: 048
  2. LEVEMIR [Suspect]
     Indication: TYPE 2 DIABETES MELLITUS
     Dosage: 10 U, QD, AT NIGHT
     Route: 058
  3. LEVEMIR [Suspect]
     Dosage: 30 U, QD, AT NIGHT
     Route: 058
  4. LEVEMIR [Suspect]
     Dosage: 25 U, QD, AT NIGHT
     Route: 058
  5. NOVOLOG [Suspect]
     Indication: TYPE 2 DIABETES MELLITUS
     Dosage: SLIDING SCALE
     Route: 058
     Dates: start: 20110401

REACTIONS (4)
  - BLOOD GLUCOSE INCREASED [None]
  - SINUSITIS [None]
  - CYSTITIS ESCHERICHIA [None]
  - CONFUSIONAL STATE [None]
